FAERS Safety Report 10204749 (Version 1)
Quarter: 2014Q2

REPORT INFORMATION
  Report Type: Spontaneous
  Country: CZ (occurrence: None)
  Receive Date: 20140527
  Receipt Date: 20140527
  Transmission Date: 20141212
  Serious: Yes (Life-Threatening, Hospitalization)
  Sender: FDA-Public Use
  Company Number: CH-015703

PATIENT
  Age: 63 Year
  Sex: Female

DRUGS (4)
  1. PICOPREP [Suspect]
     Indication: COLONOSCOPY
     Dosage: 2 SACHETS
     Dates: start: 20140504, end: 20140505
  2. PRONTOLAX [Suspect]
     Indication: COLONOSCOPY
     Route: 048
     Dates: start: 20140504, end: 20140505
  3. CYMBALTA [Suspect]
     Indication: DEPRESSION
     Route: 048
  4. LEXOTANIL [Concomitant]

REACTIONS (5)
  - Vomiting [None]
  - Confusional state [None]
  - Hyponatraemia [None]
  - Altered state of consciousness [None]
  - Drug interaction [None]
